FAERS Safety Report 10581153 (Version 1)
Quarter: 2014Q4

REPORT INFORMATION
  Report Type: Spontaneous
  Country: US (occurrence: None)
  Receive Date: 20141112
  Receipt Date: 20141112
  Transmission Date: 20150529
  Serious: Yes (Other)
  Sender: FDA-Public Use
  Company Number: None

PATIENT
  Age: 17 Year
  Sex: Female

DRUGS (2)
  1. BENZOYL PEROXIDE. [Suspect]
     Active Substance: BENZOYL PEROXIDE
     Indication: ACNE
     Dosage: APPLY  QHS/BEDTIME TOPICAL
     Route: 061
     Dates: start: 20141019, end: 20141019
  2. CLINDAMYCIN [Suspect]
     Active Substance: CLINDAMYCIN\CLINDAMYCIN PHOSPHATE
     Indication: ACNE
     Dosage: APPLY  QHS/BETIME TOPICAL
     Route: 061
     Dates: start: 20141019, end: 20141019

REACTIONS (1)
  - Laceration [None]

NARRATIVE: CASE EVENT DATE: 20141019
